FAERS Safety Report 4732652-0 (Version None)
Quarter: 2005Q3

REPORT INFORMATION
  Report Type: 
  Country: None (occurrence: None)
  Receive Date: 20050801
  Receipt Date: 20050720
  Transmission Date: 20060218
  Serious: Yes (Hospitalization)
  Sender: FDA-Public Use
  Company Number: 2005105515

PATIENT
  Age: 91 Year
  Sex: Male

DRUGS (6)
  1. ALDACTONE [Suspect]
     Indication: ILL-DEFINED DISORDER
     Dosage: 25 MG (DAILY), ORAL
     Route: 048
     Dates: start: 20050615, end: 20050624
  2. ALLOPURINOL [Suspect]
     Indication: ILL-DEFINED DISORDER
     Dosage: 200 MG (DAILY), ORAL
     Route: 048
     Dates: end: 20050624
  3. OMEPRAZOLE [Concomitant]
  4. VENTOLIN [Concomitant]
  5. FUROSEMIDE [Concomitant]
  6. DAFLON (DIOSMIN) [Concomitant]

REACTIONS (6)
  - COUGH [None]
  - EOSINOPHILIA [None]
  - ERYTHEMA [None]
  - HEPATOMEGALY [None]
  - PYREXIA [None]
  - RALES [None]
